FAERS Safety Report 7179281-X (Version None)
Quarter: 2010Q4

REPORT INFORMATION
  Report Type: 
  Country: None (occurrence: None)
  Receive Date: 20101221
  Receipt Date: 20101213
  Transmission Date: 20110411
  Serious: Yes (Hospitalization, Other)
  Sender: FDA-Public Use
  Company Number: GB-MPIJNJ-2010-05647

PATIENT

DRUGS (20)
  1. VELCADE [Suspect]
     Indication: MULTIPLE MYELOMA
     Dosage: 2.47 MG, UNK
     Route: 042
     Dates: start: 20100810, end: 20101019
  2. AMLODIPINE [Concomitant]
     Indication: HYPERTENSION
     Dosage: UNK
  3. SIMVASTATIN [Concomitant]
     Indication: HYPERCHOLESTEROLAEMIA
     Dosage: UNK
  4. LANSOPRAZOLE [Concomitant]
     Indication: GASTROOESOPHAGEAL REFLUX DISEASE
     Dosage: UNK
     Dates: start: 20070101
  5. GAVISCON                           /00237601/ [Concomitant]
     Indication: GASTROOESOPHAGEAL REFLUX DISEASE
     Dosage: UNK
     Dates: start: 20100817
  6. LOPERAMIDE [Concomitant]
     Indication: DIARRHOEA
     Dosage: UNK
     Dates: start: 20100907
  7. AUGMENTIN '125' [Concomitant]
     Indication: RHINITIS
     Dosage: UNK
     Dates: start: 20100914
  8. TRAMADOL HCL [Concomitant]
     Indication: PAIN
     Dosage: UNK
     Dates: start: 20100914
  9. ACETAMINOPHEN [Concomitant]
     Indication: PAIN
     Dosage: UNK
     Dates: start: 20100914
  10. CLARITHROMYCIN [Concomitant]
     Indication: RHINITIS
     Dosage: UNK
     Dates: start: 20101007
  11. CODEINE [Concomitant]
     Indication: DIARRHOEA
     Dosage: UNK
     Dates: start: 20101007
  12. CLODRONATE DISODIUM [Concomitant]
     Dosage: UNK
  13. SENNA                              /00142201/ [Concomitant]
     Dosage: UNK
     Dates: start: 20100914
  14. SANDO K                            /00031402/ [Concomitant]
     Dosage: UNK
     Dates: start: 20101012
  15. POSACONAZOLE [Concomitant]
     Dosage: UNK
     Dates: start: 20101101
  16. SERETIDE                           /01420901/ [Concomitant]
     Dosage: UNK
     Dates: start: 20101103
  17. ONDANSETRON [Concomitant]
     Dosage: UNK
     Dates: start: 20101102
  18. RANITIDINE [Concomitant]
     Dosage: UNK
     Dates: start: 20100810
  19. COTRIM [Concomitant]
     Dosage: UNK
     Dates: start: 20101103
  20. CYCLIZINE [Concomitant]
     Dosage: UNK
     Dates: start: 20101001

REACTIONS (7)
  - DEHYDRATION [None]
  - DIARRHOEA [None]
  - DYSPNOEA [None]
  - HYPOXIA [None]
  - RENAL IMPAIRMENT [None]
  - VOMITING [None]
  - WEIGHT DECREASED [None]
